FAERS Safety Report 9421383 (Version 1)
Quarter: 2013Q3

REPORT INFORMATION
  Report Type: Spontaneous
  Country: US (occurrence: US)
  Receive Date: 20130725
  Receipt Date: 20130725
  Transmission Date: 20140515
  Serious: Yes (Other)
  Sender: FDA-Public Use
  Company Number: US-RB-056448-13

PATIENT
  Sex: Male

DRUGS (3)
  1. SUBOXONE TABLET [Suspect]
     Indication: BACK PAIN
     Dosage: DOSING DETAILS UNKNOWN
     Route: 065
     Dates: end: 2013
  2. SUBOXONE FILM [Suspect]
     Dosage: SUBOXONE FILM; DOSING DETAILS UNKNOWN
     Route: 065
     Dates: end: 2013
  3. SUBOXONE FILM [Suspect]
     Indication: BACK PAIN
     Dosage: SUBOXONE FILM
     Route: 065
     Dates: start: 2013, end: 2013

REACTIONS (8)
  - Off label use [Recovered/Resolved]
  - Hand fracture [Unknown]
  - Drug ineffective for unapproved indication [Recovered/Resolved]
  - Mood swings [Recovered/Resolved]
  - Adverse event [Recovered/Resolved]
  - Violence-related symptom [Recovered/Resolved]
  - Anxiety [Recovered/Resolved]
  - Underdose [Recovered/Resolved]
